FAERS Safety Report 17165363 (Version 1)
Quarter: 2019Q4

REPORT INFORMATION
  Report Type: Report from Study
  Country: CO (occurrence: CO)
  Receive Date: 20191217
  Receipt Date: 20191217
  Transmission Date: 20200122
  Serious: Yes (Other)
  Sender: FDA-Public Use
  Company Number: CO-JNJFOC-20170614787

PATIENT
  Age: 82 Year
  Sex: Female
  Weight: 45 kg

DRUGS (5)
  1. IMBRUVICA [Suspect]
     Active Substance: IBRUTINIB
     Route: 048
  2. IMBRUVICA [Suspect]
     Active Substance: IBRUTINIB
     Indication: CHRONIC LYMPHOCYTIC LEUKAEMIA
     Route: 048
     Dates: start: 20150914, end: 20170720
  3. IMBRUVICA [Suspect]
     Active Substance: IBRUTINIB
     Route: 048
     Dates: start: 20170721, end: 20170909
  4. IMBRUVICA [Suspect]
     Active Substance: IBRUTINIB
     Dosage: ONE CAPSULE IN A DAY AND TWO CAPSULES IN THE NEXT DAY.
     Route: 048
     Dates: start: 20170910
  5. IMBRUVICA [Suspect]
     Active Substance: IBRUTINIB
     Route: 048
     Dates: start: 20171123

REACTIONS (14)
  - Off label use [Unknown]
  - Influenza [Recovered/Resolved]
  - Neutropenia [Not Recovered/Not Resolved]
  - Haematoma [Recovering/Resolving]
  - Blister [Recovered/Resolved]
  - Inappropriate schedule of product administration [Unknown]
  - Contusion [Unknown]
  - Oedema peripheral [Unknown]
  - Incorrect dose administered [Unknown]
  - Hypertension [Recovering/Resolving]
  - Lip blister [Recovering/Resolving]
  - Leukocytosis [Not Recovered/Not Resolved]
  - Muscle spasms [Unknown]
  - Vomiting [Recovering/Resolving]

NARRATIVE: CASE EVENT DATE: 20150914
